APPROVED DRUG PRODUCT: APTIOM
Active Ingredient: ESLICARBAZEPINE ACETATE
Strength: 400MG
Dosage Form/Route: TABLET;ORAL
Application: N022416 | Product #002 | TE Code: AB
Applicant: SUMITOMO PHARMA AMERICA INC
Approved: Nov 8, 2013 | RLD: Yes | RS: No | Type: RX

PATENTS:
Patent 9750747 | Expires: Aug 24, 2032
Patent 9750747 | Expires: Aug 24, 2032
Patent 9763954 | Expires: Sep 13, 2028
Patent 10912781 | Expires: Oct 23, 2028
Patent 9566244 | Expires: Oct 23, 2028
Patent 9643929 | Expires: Apr 21, 2026
Patent 8372431 | Expires: Apr 17, 2030
Patent 9206135 | Expires: Apr 21, 2026